FAERS Safety Report 16920764 (Version 2)
Quarter: 2019Q4

REPORT INFORMATION
  Report Type: Report from Study
  Country: GB (occurrence: GB)
  Receive Date: 20191015
  Receipt Date: 20191016
  Transmission Date: 20200122
  Serious: Yes (Hospitalization, Other)
  Sender: FDA-Public Use
  Company Number: GB-GLAXOSMITHKLINE-GB2019EME182140

PATIENT

DRUGS (1)
  1. MEPOLIZUMAB [Suspect]
     Active Substance: MEPOLIZUMAB
     Indication: ASTHMA
     Dosage: 100 MG, UNK(EVERY 4 WEEKS)
     Route: 042

REACTIONS (4)
  - Nasopharyngitis [Unknown]
  - Hospitalisation [Unknown]
  - Sputum discoloured [Unknown]
  - Pneumonia [Unknown]
